FAERS Safety Report 7964359-0 (Version None)
Quarter: 2011Q4

REPORT INFORMATION
  Report Type: 
  Country: None (occurrence: None)
  Receive Date: 20111208
  Receipt Date: 20111205
  Transmission Date: 20120403
  Serious: Yes (Other)
  Sender: FDA-Public Use
  Company Number: US-PFIZER INC-2011296799

PATIENT
  Sex: Female
  Weight: 136 kg

DRUGS (4)
  1. LASIX [Concomitant]
     Dosage: UNK
  2. DEPO-PROVERA [Suspect]
     Indication: OFF LABEL USE
     Dosage: 400 MG, EVERY 4 MONTHS
     Route: 030
     Dates: start: 20090101
  3. DEPO-PROVERA [Suspect]
     Indication: POLYCYSTIC OVARIES
  4. SIMVASTATIN [Concomitant]
     Dosage: UNK

REACTIONS (1)
  - BLOOD CHOLESTEROL INCREASED [None]
